FAERS Safety Report 5158138-X (Version None)
Quarter: 2006Q4

REPORT INFORMATION
  Report Type: 
  Country: None (occurrence: None)
  Receive Date: 20061120
  Receipt Date: 20061120
  Transmission Date: 20070319
  Serious: Yes (Hospitalization, Other)
  Sender: FDA-Public Use
  Company Number: None

PATIENT
  Age: 59 Year
  Sex: Female

DRUGS (13)
  1. RITUXAN [Suspect]
     Indication: HODGKIN'S DISEASE
  2. ACETAMINOPHEN [Concomitant]
  3. ALBUTEROL [Concomitant]
  4. IPRATROPIUM BROMIDE [Concomitant]
  5. FLUCONAZLE [Concomitant]
  6. FOLIC ACID [Concomitant]
  7. LASIX [Concomitant]
  8. INSULIN [Concomitant]
  9. LANSOPRAZOLE [Concomitant]
  10. LORAZEPAM [Concomitant]
  11. METHYLPREDNISOLONE [Concomitant]
  12. POTASSIUM CHLORIDE [Concomitant]
  13. MAGNESIUM SULFATE [Concomitant]

REACTIONS (1)
  - HYPOGAMMAGLOBULINAEMIA [None]
